FAERS Safety Report 5590543-X (Version None)
Quarter: 2008Q1

REPORT INFORMATION
  Report Type: 
  Country: None (occurrence: None)
  Receive Date: 20080114
  Receipt Date: 20080108
  Transmission Date: 20080703
  Serious: Yes (Hospitalization)
  Sender: FDA-Public Use
  Company Number: AU-BOEHRINGER INGELHEIM PHARMACEUTICALS, INC.-2008-BP-00391AU

PATIENT
  Sex: Female

DRUGS (6)
  1. MOBIC [Suspect]
     Route: 048
  2. VIOXX [Suspect]
     Route: 048
  3. PANADEINE FORTE (PARACETAMOL/CODEINE) [Concomitant]
     Indication: PAIN
     Route: 048
  4. COLOXYL (DOCUSATE SODIUM) [Concomitant]
     Indication: CONSTIPATION
     Route: 048
  5. RENITEC (ENALAPRIL) [Concomitant]
     Indication: HYPERTENSION
     Route: 048
  6. RABEPRAZOLE SODIUM [Concomitant]
     Indication: DUODENAL ULCER
     Route: 048

REACTIONS (8)
  - ABDOMINAL PAIN [None]
  - GASTROINTESTINAL DISORDER [None]
  - IRON DEFICIENCY ANAEMIA [None]
  - PANCREATIC NEOPLASM [None]
  - PYREXIA [None]
  - RECTAL HAEMORRHAGE [None]
  - SMALL INTESTINE ULCER [None]
  - VOMITING [None]
